FAERS Safety Report 12758593 (Version 1)
Quarter: 2016Q3

REPORT INFORMATION
  Report Type: Spontaneous
  Country: US (occurrence: US)
  Receive Date: 20160919
  Receipt Date: 20160919
  Transmission Date: 20161109
  Serious: Yes (Congenital Anomaly, Other)
  Sender: FDA-Public Use
  Company Number: PHEH2016US023303

PATIENT

DRUGS (3)
  1. ZOFRAN ODT [Suspect]
     Active Substance: ONDANSETRON HYDROCHLORIDE
     Indication: FOETAL EXPOSURE DURING PREGNANCY
     Route: 064
  2. ZOFRAN [Suspect]
     Active Substance: ONDANSETRON HYDROCHLORIDE
     Indication: FOETAL EXPOSURE DURING PREGNANCY
     Route: 064
  3. ZOFRAN [Suspect]
     Active Substance: ONDANSETRON HYDROCHLORIDE
     Indication: FOETAL EXPOSURE DURING PREGNANCY
     Route: 064

REACTIONS (11)
  - Immune system disorder [Unknown]
  - Congenital vesicoureteric reflux [Unknown]
  - Reflux nephropathy [Unknown]
  - Chronic kidney disease [Unknown]
  - Pyelonephritis [Unknown]
  - Foetal exposure during pregnancy [Unknown]
  - Urethral valves [Unknown]
  - Pyuria [Unknown]
  - Injury [Unknown]
  - Single functional kidney [Unknown]
  - Developmental delay [Unknown]
